FAERS Safety Report 8833041 (Version 1)
Quarter: 2012Q4

REPORT INFORMATION
  Report Type: Spontaneous
  Country: US (occurrence: None)
  Receive Date: 20121009
  Receipt Date: 20121009
  Transmission Date: 20130627
  Serious: Yes (Hospitalization)
  Sender: FDA-Public Use
  Company Number: None

PATIENT
  Weight: 33.6 kg

DRUGS (2)
  1. PEGASYS [Suspect]
     Indication: HEPATITIS C
     Route: 058
     Dates: start: 20120613
  2. RIBASPHERE [Suspect]
     Dosage: 200mg, 1am: 2pm po
     Route: 048
     Dates: start: 20120613

REACTIONS (1)
  - Anaemia [None]
